FAERS Safety Report 17729672 (Version 3)
Quarter: 2020Q2

REPORT INFORMATION
  Report Type: Report from Study
  Country: US (occurrence: US)
  Receive Date: 20200430
  Receipt Date: 20200521
  Transmission Date: 20200714
  Serious: Yes (Hospitalization, Other)
  Sender: FDA-Public Use
  Company Number: US-PFIZER INC-2020172857

PATIENT
  Age: 56 Year
  Sex: Male

DRUGS (2)
  1. SUTENT [Suspect]
     Active Substance: SUNITINIB MALATE
     Indication: RENAL CANCER
     Dosage: 50 MG, CYCLIC, DAILY FOR 4 WEEKS ON, 2 WEEKS OFF
     Route: 048
     Dates: start: 20200412, end: 20200421
  2. SUTENT [Suspect]
     Active Substance: SUNITINIB MALATE
     Dosage: 50 MG, CYCLIC, DAILY FOR 4 WEEKS ON, 2 WEEKS OFF/(ONCE A DAY/ 4 WEEKS ON, 2 WEEKS OFF)
     Route: 048
     Dates: start: 20200503, end: 20200510

REACTIONS (12)
  - Leukopenia [Recovering/Resolving]
  - Feeling abnormal [Unknown]
  - Presyncope [Unknown]
  - Blood potassium decreased [Unknown]
  - Asthenia [Unknown]
  - Blood count abnormal [Recovering/Resolving]
  - Diarrhoea [Recovered/Resolved]
  - Dyspnoea [Recovered/Resolved]
  - Nausea [Recovered/Resolved]
  - Fatigue [Recovered/Resolved]
  - Hypotension [Recovered/Resolved]
  - Liver function test increased [Unknown]

NARRATIVE: CASE EVENT DATE: 2020
